FAERS Safety Report 6368629-1 (Version None)
Quarter: 2009Q3

REPORT INFORMATION
  Report Type: 
  Country: None (occurrence: None)
  Receive Date: 20090916
  Receipt Date: 20090902
  Transmission Date: 20100115
  Serious: Yes (Hospitalization)
  Sender: FDA-Public Use
  Company Number: 1-19587473

PATIENT
  Age: 77 Year
  Sex: Female

DRUGS (4)
  1. MOMETASONE FUROATE [Suspect]
     Indication: PRURITUS
     Dosage: TOPICAL
     Route: 061
     Dates: end: 20090101
  2. OXYCODONE AND ACETAMINOPHEN [Suspect]
     Indication: PAIN
     Dosage: 10/325 MG Q 4-5 HRS, ORAL
     Route: 048
     Dates: start: 20020101
  3. GLYBURIDE [Concomitant]
  4. SYNTHROID [Concomitant]

REACTIONS (10)
  - ANAL PRURITUS [None]
  - BACTERIAL INFECTION [None]
  - BLOOD CULTURE POSITIVE [None]
  - BLOOD DISORDER [None]
  - EXCORIATION [None]
  - PRURITUS GENERALISED [None]
  - SCRATCH [None]
  - UROSEPSIS [None]
  - VULVOVAGINAL PRURITUS [None]
  - WITHDRAWAL SYNDROME [None]
